FAERS Safety Report 8285561-7 (Version None)
Quarter: 2012Q2

REPORT INFORMATION
  Report Type: 
  Country: None (occurrence: None)
  Receive Date: 20120413
  Receipt Date: 20111005
  Transmission Date: 20120825
  Serious: Yes (Other)
  Sender: FDA-Public Use
  Company Number: US-ASTRAZENECA-2011SE59729

PATIENT
  Age: 33 Year
  Sex: Male
  Weight: 78 kg

DRUGS (8)
  1. PRILOSEC [Suspect]
     Route: 048
  2. TYLENOL (CAPLET) [Concomitant]
  3. INDERAL [Concomitant]
  4. XANAX [Concomitant]
  5. VITAMIN B-12 [Concomitant]
  6. VICODIN [Concomitant]
  7. NEXIUM [Suspect]
     Indication: GASTROOESOPHAGEAL REFLUX DISEASE
     Route: 048
  8. CELEXA [Concomitant]

REACTIONS (7)
  - DRUG INEFFECTIVE [None]
  - HEADACHE [None]
  - OVERDOSE [None]
  - RIB FRACTURE [None]
  - PANIC ATTACK [None]
  - CLAVICLE FRACTURE [None]
  - WRIST FRACTURE [None]
